FAERS Safety Report 11800224 (Version 5)
Quarter: 2016Q1

REPORT INFORMATION
  Report Type: Report from Study
  Country: JP (occurrence: JP)
  Receive Date: 20151203
  Receipt Date: 20160203
  Transmission Date: 20160525
  Serious: Yes (Hospitalization, Other)
  Sender: FDA-Public Use
  Company Number: JP-AMGEN-JPNCT2015128004

PATIENT
  Age: 79 Year
  Sex: Female
  Weight: 32.4 kg

DRUGS (15)
  1. 5-FU                               /00098801/ [Suspect]
     Active Substance: FLUOROURACIL
     Indication: COLON CANCER RECURRENT
     Dosage: 400 MG/M2, Q2WEEKS
     Route: 040
     Dates: start: 20151102, end: 20151102
  2. NOVAMIN                            /00013304/ [Concomitant]
     Active Substance: PROCHLORPERAZINE MALEATE
     Indication: NAUSEA
     Dosage: 50 MG, UNK
     Route: 048
     Dates: start: 20151202
  3. BROTIZOLAM [Concomitant]
     Active Substance: BROTIZOLAM
     Indication: INSOMNIA
     Dosage: 0.25 MG, QD
     Route: 048
  4. OXALIPLATIN. [Suspect]
     Active Substance: OXALIPLATIN
     Indication: COLON CANCER RECURRENT
     Dosage: 85 MG/M2, Q2WEEKS
     Route: 041
     Dates: start: 20151102, end: 20151102
  5. MINOMYCIN [Concomitant]
     Active Substance: MINOCYCLINE HYDROCHLORIDE
     Indication: PROPHYLAXIS
     Dosage: 50 MG, BID
     Route: 048
     Dates: start: 20151028
  6. 5-FU                               /00098801/ [Suspect]
     Active Substance: FLUOROURACIL
     Indication: METASTASES TO RETROPERITONEUM
     Dosage: 2400 MG/M2, Q2WK
     Route: 041
     Dates: start: 20151102, end: 20151102
  7. 5-FU                               /00098801/ [Suspect]
     Active Substance: FLUOROURACIL
     Indication: NEOPLASM MALIGNANT
     Dosage: UNK
     Route: 041
     Dates: start: 20151125, end: 20151216
  8. CALCIUM LEVOFOLINATE [Concomitant]
     Active Substance: LEVOLEUCOVORIN CALCIUM
     Indication: COLON CANCER RECURRENT
     Dosage: UNK, Q2WEEKS
     Route: 041
     Dates: start: 20151102, end: 20151102
  9. PANITUMUMAB [Suspect]
     Active Substance: PANITUMUMAB
     Indication: METASTASES TO RETROPERITONEUM
     Dosage: 6 MG/KG, Q2WEEKS
     Route: 041
     Dates: start: 20151125, end: 20151216
  10. CALCIUM LEVOFOLINATE [Concomitant]
     Active Substance: LEVOLEUCOVORIN CALCIUM
     Indication: METASTASES TO RETROPERITONEUM
     Dosage: UNK, Q2WEEKS
     Route: 041
     Dates: start: 20151125, end: 20151216
  11. HIRUDOID                           /00723701/ [Concomitant]
     Active Substance: PENTOSAN POLYSULFATE SODIUM
     Indication: PROPHYLAXIS
     Dosage: UNK, BID
     Route: 062
     Dates: start: 20151028
  12. PANITUMUMAB [Suspect]
     Active Substance: PANITUMUMAB
     Indication: COLON CANCER RECURRENT
     Dosage: 6 MG/KG, Q2WEEKS
     Route: 041
     Dates: start: 20151102, end: 20151102
  13. PANITUMUMAB [Suspect]
     Active Substance: PANITUMUMAB
     Indication: NEOPLASM MALIGNANT
  14. OXALIPLATIN. [Suspect]
     Active Substance: OXALIPLATIN
     Indication: METASTASES TO RETROPERITONEUM
     Dosage: UNK
     Route: 041
     Dates: start: 20151125, end: 20151216
  15. BIO-THREE [Concomitant]
     Active Substance: HERBALS
     Indication: GASTROINTESTINAL DISORDER
     Dosage: 1 G, TID
     Route: 048
     Dates: start: 20151104

REACTIONS (8)
  - Febrile neutropenia [Recovered/Resolved]
  - Palmar-plantar erythrodysaesthesia syndrome [Recovering/Resolving]
  - Amylase increased [Recovered/Resolved]
  - Gastrointestinal oedema [Unknown]
  - Impaired gastric emptying [Unknown]
  - Stomatitis [Recovering/Resolving]
  - Gastrointestinal motility disorder [Unknown]
  - Amylase increased [Recovered/Resolved]

NARRATIVE: CASE EVENT DATE: 20151118
